FAERS Safety Report 6133459-2 (Version None)
Quarter: 2009Q1

REPORT INFORMATION
  Report Type: 
  Country: None (occurrence: None)
  Receive Date: 20090326
  Receipt Date: 20090326
  Transmission Date: 20090719
  Serious: Yes (Hospitalization, Other)
  Sender: FDA-Public Use
  Company Number: PHHO2005CH11554

PATIENT
  Sex: Female
  Weight: 40 kg

DRUGS (1)
  1. CGS 20267 T30748+ [Suspect]
     Indication: BREAST CANCER
     Dosage: 2.5 MG, QD
     Route: 048
     Dates: start: 20001205

REACTIONS (5)
  - ACQUIRED CARDIAC SEPTAL DEFECT [None]
  - CHEST PAIN [None]
  - MYOCARDIAL ISCHAEMIA [None]
  - PALPITATIONS [None]
  - VENTRICULAR HYPOKINESIA [None]
